FAERS Safety Report 9219077 (Version 4)
Quarter: 2016Q4

REPORT INFORMATION
  Report Type: Report from Study
  Country: MX (occurrence: MX)
  Receive Date: 20130409
  Receipt Date: 20161208
  Transmission Date: 20170207
  Serious: Yes (Hospitalization, Other)
  Sender: FDA-Public Use
  Company Number: PHHY2013MX033574

PATIENT
  Age: 67 Year
  Sex: Female
  Weight: 60 kg

DRUGS (7)
  1. CO-DIOVAN [Suspect]
     Active Substance: HYDROCHLOROTHIAZIDE\VALSARTAN
     Dosage: 0.5 DF, BID (HALF TABLET IN THE MORNING AND HALF TABLET AT NIGHT)
     Route: 048
  2. TENORETIC [Concomitant]
     Active Substance: ATENOLOL\CHLORTHALIDONE
     Indication: HYPERTENSION
     Dosage: 1 DF, DAILY
     Route: 065
     Dates: start: 200301
  3. TENORETIC [Concomitant]
     Active Substance: ATENOLOL\CHLORTHALIDONE
     Dosage: 0.5 DF, UNK
     Route: 065
  4. CO-DIOVAN [Suspect]
     Active Substance: HYDROCHLOROTHIAZIDE\VALSARTAN
     Indication: HYPERTENSION
     Dosage: 1 DF, QD (HYDROCHLOROTHIAZIDE 12.5 MG, VALSARTAN 160 MG)
     Route: 048
     Dates: start: 2009
  5. SEROQUEL [Concomitant]
     Active Substance: QUETIAPINE FUMARATE
     Indication: PRODUCT USED FOR UNKNOWN INDICATION
     Dosage: 1 DF (150 MG), DAILY (AT 7 PM)
     Route: 065
  6. TAFIL [Concomitant]
     Active Substance: ALPRAZOLAM
     Indication: SLEEP DISORDER
     Dosage: 1 DF (0.5 MG), DAILY
     Route: 065
     Dates: start: 2011
  7. TRAYENTA [Concomitant]
     Active Substance: LINAGLIPTIN
     Indication: PRODUCT USED FOR UNKNOWN INDICATION
     Route: 065

REACTIONS (13)
  - Blood glucose increased [Unknown]
  - Carotid body tumour [Not Recovered/Not Resolved]
  - Palpitations [Recovered/Resolved]
  - Drug prescribing error [Unknown]
  - Diabetes mellitus [Not Recovered/Not Resolved]
  - Depression [Recovering/Resolving]
  - Malaise [Unknown]
  - Anxiety [Recovering/Resolving]
  - Obesity [Not Recovered/Not Resolved]
  - Malignant neoplasm of eye [Recovered/Resolved]
  - Weight decreased [Unknown]
  - Abdominal pain upper [Unknown]
  - Wrong technique in product usage process [Not Recovered/Not Resolved]

NARRATIVE: CASE EVENT DATE: 201206
